FAERS Safety Report 8471793-1 (Version None)
Quarter: 2012Q2

REPORT INFORMATION
  Report Type: 
  Country: None (occurrence: None)
  Receive Date: 20120627
  Receipt Date: 20100718
  Transmission Date: 20120825
  Serious: Yes (Other)
  Sender: FDA-Public Use
  Company Number: BR-ROCHE-717338

PATIENT
  Sex: Male

DRUGS (3)
  1. CLONAZEPAM [Suspect]
     Indication: PRODUCT USED FOR UNKNOWN INDICATION
     Dosage: 3 TABLETS DAILY; OVERDOSE
     Route: 065
  2. CLONAZEPAM [Suspect]
     Route: 065
  3. CLONAZEPAM [Suspect]
     Dosage: 6 TABLETS PER DAY; OVERDOSE
     Route: 065
     Dates: start: 20100719, end: 20100719

REACTIONS (8)
  - CARDIAC ARREST [None]
  - OVERDOSE [None]
  - URINARY RETENTION [None]
  - BLADDER PAIN [None]
  - LIMB INJURY [None]
  - BALANCE DISORDER [None]
  - ANXIETY [None]
  - FALL [None]
